FAERS Safety Report 18417595 (Version 1)
Quarter: 2020Q4

REPORT INFORMATION
  Report Type: Spontaneous
  Country: US (occurrence: US)
  Receive Date: 20201022
  Receipt Date: 20201022
  Transmission Date: 20210114
  Serious: No
  Sender: FDA-Public Use
  Company Number: US-SEATTLE GENETICS-2020SGN03347

PATIENT
  Sex: Female

DRUGS (1)
  1. TUKYSA [Suspect]
     Active Substance: TUCATINIB
     Indication: BREAST CANCER FEMALE
     Dosage: UNK, BID

REACTIONS (9)
  - Depression [Unknown]
  - Neuropathy peripheral [Unknown]
  - Muscle spasms [Unknown]
  - Limb injury [Unknown]
  - Product dose omission issue [Unknown]
  - Onychomadesis [Unknown]
  - Skin discolouration [Unknown]
  - Adverse drug reaction [Unknown]
  - Fatigue [Unknown]
